FAERS Safety Report 7391703-8 (Version None)
Quarter: 2011Q2

REPORT INFORMATION
  Report Type: 
  Country: None (occurrence: None)
  Receive Date: 20110404
  Receipt Date: 20110324
  Transmission Date: 20111010
  Serious: Yes (Other)
  Sender: FDA-Public Use
  Company Number: US-SANOFI-AVENTIS-2011SA019548

PATIENT
  Age: 77 Year
  Sex: Male

DRUGS (1)
  1. JEVTANA KIT [Suspect]
     Indication: PROSTATE CANCER
     Route: 041

REACTIONS (3)
  - PROSTATIC SPECIFIC ANTIGEN INCREASED [None]
  - PULMONARY EMBOLISM [None]
  - DYSPNOEA [None]
